FAERS Safety Report 17449441 (Version 1)
Quarter: 2020Q1

REPORT INFORMATION
  Report Type: Spontaneous
  Country: US (occurrence: US)
  Receive Date: 20200224
  Receipt Date: 20200224
  Transmission Date: 20200409
  Serious: No
  Sender: FDA-Public Use
  Company Number: US-ALLERGAN-1936258US

PATIENT
  Sex: Male

DRUGS (5)
  1. NOT SPECIFIED MEDICATION [Concomitant]
     Indication: SLEEP DISORDER
  2. OXYTROL FOR WOMEN [Suspect]
     Active Substance: OXYBUTYNIN
     Indication: URINARY INCONTINENCE
     Dosage: 1 DF, BID
     Route: 062
     Dates: start: 20190828
  3. ELIQUIS [Concomitant]
     Active Substance: APIXABAN
  4. TAMSULOSIN [Concomitant]
     Active Substance: TAMSULOSIN
  5. METROZOLE [Concomitant]
     Active Substance: METRONIDAZOLE

REACTIONS (4)
  - Off label use [Unknown]
  - Erythema [Recovered/Resolved]
  - Skin irritation [Recovered/Resolved]
  - Application site pain [Recovered/Resolved]

NARRATIVE: CASE EVENT DATE: 2019
